FAERS Safety Report 18206049 (Version 1)
Quarter: 2020Q3

REPORT INFORMATION
  Report Type: Spontaneous
  Country: CA (occurrence: CA)
  Receive Date: 20200828
  Receipt Date: 20200828
  Transmission Date: 20201103
  Serious: Yes (Hospitalization, Other)
  Sender: FDA-Public Use
  Company Number: CA-ACCORD-197093

PATIENT
  Age: 28 Year
  Sex: Female

DRUGS (4)
  1. METHOTREXATE. [Suspect]
     Active Substance: METHOTREXATE
     Indication: HYPERTHYROIDISM
     Dosage: NOT SPECIFIED, 1 EVERY 1 DAYS
     Route: 048
  2. AMITRIPTYLINE [Concomitant]
     Active Substance: AMITRIPTYLINE
  3. IRON [Concomitant]
     Active Substance: IRON
  4. PROPRANOLOL [Concomitant]
     Active Substance: PROPRANOLOL HYDROCHLORIDE
     Dosage: NOT SPECIFIED

REACTIONS (11)
  - Haemoptysis [Unknown]
  - Vomiting [Unknown]
  - Nausea [Unknown]
  - Tachycardia [Unknown]
  - Palpitations [Unknown]
  - Product dispensing error [Unknown]
  - Asthenia [Unknown]
  - Haematemesis [Unknown]
  - Dizziness [Unknown]
  - Epigastric discomfort [Unknown]
  - Off label use [Unknown]
